FAERS Safety Report 5507588-8 (Version None)
Quarter: 2007Q4

REPORT INFORMATION
  Report Type: 
  Country: None (occurrence: None)
  Receive Date: 20071102
  Receipt Date: 20071024
  Transmission Date: 20080405
  Serious: Yes (Other)
  Sender: FDA-Public Use
  Company Number: 2007-02344

PATIENT
  Age: 73 Year
  Sex: Male
  Weight: 94.2 kg

DRUGS (12)
  1. VELCADE(VELCADE) INJECTION, VELCADE (BORTEZOMIB) INJECTION [Suspect]
     Indication: MANTLE CELL LYMPHOMA
     Dosage: 2.75 MG, IV BOLUS, 1.47 MG, INTRAVENOUS
     Route: 040
     Dates: start: 20070510, end: 20070513
  2. VELCADE(VELCADE) INJECTION, VELCADE (BORTEZOMIB) INJECTION [Suspect]
     Indication: MANTLE CELL LYMPHOMA
     Dosage: 2.75 MG, IV BOLUS, 1.47 MG, INTRAVENOUS
     Route: 040
     Dates: start: 20070601, end: 20070605
  3. RITUXIMAB(RITUXIMAB) INJECTION, 375MG/M2 [Suspect]
     Indication: MANTLE CELL LYMPHOMA
     Dosage: 800.00 MG, INTRAVENOUS
     Route: 042
     Dates: start: 20070509, end: 20070608
  4. CYCLOPHOSPHAMIDE [Suspect]
     Indication: MANTLE CELL LYMPHOMA
     Dosage: 630.00, INTRAVENOUS
     Route: 042
     Dates: start: 20070510, end: 20070608
  5. VINCRISTINE [Suspect]
     Indication: MANTLE CELL LYMPHOMA
     Dosage: 2.00 MG, 2.00 MG, IV BOLUS
     Route: 040
     Dates: start: 20070513, end: 20070608
  6. ADRIAMYCIN RDF [Suspect]
     Indication: MANTLE CELL LYMPHOMA
     Dosage: 106.00 MG, INTRAVENOUS
     Route: 042
     Dates: start: 20070513, end: 20070608
  7. DEXAMETHASONE [Suspect]
     Indication: MANTLE CELL LYMPHOMA
     Dosage: 40.00 MG, ORAL
     Route: 048
     Dates: start: 20070509, end: 20070608
  8. CYTARABINE [Suspect]
     Indication: MANTLE CELL LYMPHOMA
     Dosage: 1.58 G, INTRAVENOUS
     Route: 042
     Dates: start: 20070602
  9. METHOTREXATE(METHOTREXATE SODIUM) INJECTION [Suspect]
     Indication: MANTLE CELL LYMPHOMA
     Dosage: 1680.00 MG, INTRAVENOUS
     Route: 042
     Dates: start: 20070601
  10. CLONIDINE [Concomitant]
  11. CRESTOR [Concomitant]
  12. ASPIRIN [Concomitant]

REACTIONS (6)
  - CARBON MONOXIDE DIFFUSING CAPACITY DECREASED [None]
  - FEBRILE NEUTROPENIA [None]
  - FORCED EXPIRATORY VOLUME ABNORMAL [None]
  - HYPOXIA [None]
  - INFECTION [None]
  - PULMONARY TOXICITY [None]
